FAERS Safety Report 9612537 (Version 1)
Quarter: 2013Q4

REPORT INFORMATION
  Report Type: Spontaneous
  Country: SE (occurrence: SE)
  Receive Date: 20131010
  Receipt Date: 20131010
  Transmission Date: 20140711
  Serious: Yes (Other)
  Sender: FDA-Public Use
  Company Number: SE-PFIZER INC-2013287402

PATIENT
  Sex: Male

DRUGS (1)
  1. EFEXOR DEPOT [Suspect]
     Dosage: UNK
     Route: 064
     Dates: start: 20080130, end: 20080929

REACTIONS (2)
  - Maternal exposure during pregnancy [Not Recovered/Not Resolved]
  - Optic nerve disorder [Not Recovered/Not Resolved]
